FAERS Safety Report 6102917-9 (Version None)
Quarter: 2009Q1

REPORT INFORMATION
  Report Type: 
  Country: None (occurrence: None)
  Receive Date: 20090303
  Receipt Date: 20090303
  Transmission Date: 20090719
  Serious: Yes (Life-Threatening, Hospitalization)
  Sender: FDA-Public Use
  Company Number: None

PATIENT
  Age: 25 Year
  Sex: Female
  Weight: 52.6173 kg

DRUGS (3)
  1. WELLBUTRIN [Suspect]
     Indication: BIPOLAR DISORDER
     Dosage: 100MG TWICE DAILY PO
     Route: 048
     Dates: start: 20090225, end: 20090227
  2. WELLBUTRIN [Suspect]
     Indication: DEPRESSION
     Dosage: 100MG TWICE DAILY PO
     Route: 048
     Dates: start: 20090225, end: 20090227
  3. WELLBUTRIN [Concomitant]

REACTIONS (17)
  - ABDOMINAL PAIN UPPER [None]
  - AGGRESSION [None]
  - ANGER [None]
  - BACK PAIN [None]
  - CHEST PAIN [None]
  - FEELING OF DESPAIR [None]
  - HYPERVENTILATION [None]
  - INCORRECT DOSE ADMINISTERED [None]
  - INSOMNIA [None]
  - PALPITATIONS [None]
  - PANIC ATTACK [None]
  - REPETITIVE SPEECH [None]
  - RESTLESSNESS [None]
  - SUICIDAL IDEATION [None]
  - SUICIDE ATTEMPT [None]
  - TACHYPHRENIA [None]
  - VOMITING [None]
